FAERS Safety Report 7385696-7 (Version None)
Quarter: 2011Q1

REPORT INFORMATION
  Report Type: 
  Country: None (occurrence: None)
  Receive Date: 20110331
  Receipt Date: 20110328
  Transmission Date: 20110831
  Serious: Yes (Other)
  Sender: FDA-Public Use
  Company Number: US-SP-2011-00758

PATIENT
  Sex: Male

DRUGS (1)
  1. TUBERSOL [Suspect]
     Indication: TUBERCULIN TEST
     Route: 023
     Dates: start: 20110219, end: 20110219

REACTIONS (6)
  - URTICARIA [None]
  - HYPERSENSITIVITY [None]
  - EYELID OEDEMA [None]
  - VACCINATION SITE ERYTHEMA [None]
  - JOINT SWELLING [None]
  - OCULAR HYPERAEMIA [None]
